FAERS Safety Report 4804344-0 (Version None)
Quarter: 2005Q4

REPORT INFORMATION
  Report Type: 
  Country: None (occurrence: None)
  Receive Date: 20051014
  Receipt Date: 20050930
  Transmission Date: 20060501
  Serious: Yes (Death)
  Sender: FDA-Public Use
  Company Number: 2005PV002800

PATIENT
  Age: 66 Year
  Sex: Male
  Weight: 156.8 kg

DRUGS (18)
  1. SYMLIN [Suspect]
     Indication: DIABETES MELLITUS NON-INSULIN-DEPENDENT
     Dosage: SEE IMAGE, SC
     Route: 058
     Dates: start: 20050531, end: 20050602
  2. SYMLIN [Suspect]
     Indication: DIABETES MELLITUS NON-INSULIN-DEPENDENT
     Dosage: SEE IMAGE, SC
     Route: 058
     Dates: start: 20050603, end: 20050608
  3. SYMLIN [Suspect]
     Indication: DIABETES MELLITUS NON-INSULIN-DEPENDENT
     Dosage: SEE IMAGE, SC
     Route: 058
     Dates: start: 20050620, end: 20050721
  4. SYMLIN [Suspect]
     Indication: DIABETES MELLITUS NON-INSULIN-DEPENDENT
     Dosage: SEE IMAGE, SC
     Route: 058
     Dates: start: 20050802, end: 20050915
  5. LANTUS [Concomitant]
  6. NOVOLOG [Concomitant]
  7. SIMVASTATIN [Concomitant]
  8. METFORMIN [Concomitant]
  9. ROSIGLITAZONE [Concomitant]
  10. FENOFIBRATE OR PLACEBO [Concomitant]
  11. COUMADIN [Concomitant]
  12. CATAPRES [Concomitant]
  13. MONOPRIL [Concomitant]
  14. FUROSEMIDE [Concomitant]
  15. LOPRESSOR [Concomitant]
  16. ALLEGRA [Concomitant]
  17. ZOCOR [Concomitant]
  18. K-DUR 10 [Concomitant]

REACTIONS (9)
  - ABDOMINAL PAIN LOWER [None]
  - ABDOMINAL PAIN UPPER [None]
  - ARTERIOSCLEROSIS [None]
  - CARDIO-RESPIRATORY ARREST [None]
  - DIVERTICULITIS [None]
  - GASTROINTESTINAL DISORDER [None]
  - HYPOGLYCAEMIA [None]
  - NAUSEA [None]
  - SUDDEN DEATH [None]
